FAERS Safety Report 5759193-6 (Version None)
Quarter: 2008Q2

REPORT INFORMATION
  Report Type: 
  Country: None (occurrence: None)
  Receive Date: 20080604
  Receipt Date: 20080523
  Transmission Date: 20081010
  Serious: Yes (Other)
  Sender: FDA-Public Use
  Company Number: GB-PFIZER INC-2008042619

PATIENT
  Sex: Male

DRUGS (1)
  1. CHANTIX [Suspect]
     Indication: SMOKING CESSATION THERAPY
     Route: 048
     Dates: start: 20080315, end: 20080511

REACTIONS (5)
  - ABNORMAL BEHAVIOUR [None]
  - ALCOHOL ABUSE [None]
  - DEPRESSION [None]
  - GASTRIC DISORDER [None]
  - IRRITABILITY [None]
